FAERS Safety Report 4603000-1 (Version None)
Quarter: 2005Q1

REPORT INFORMATION
  Report Type: 
  Country: None (occurrence: None)
  Receive Date: 20050309
  Receipt Date: 20050127
  Transmission Date: 20050727
  Serious: Yes (Hospitalization)
  Sender: FDA-Public Use
  Company Number: JP-ROCHE-394558

PATIENT
  Age: 42 Year
  Sex: Male

DRUGS (8)
  1. TAMIFLU [Suspect]
     Indication: INFLUENZA
     Route: 048
     Dates: start: 20050120, end: 20050120
  2. TAMIFLU [Suspect]
     Route: 048
     Dates: start: 20050118, end: 20050119
  3. TAMIFLU [Suspect]
     Route: 048
     Dates: start: 20050117, end: 20050117
  4. PL [Concomitant]
     Route: 048
     Dates: start: 20050117, end: 20050120
  5. BISOLVON [Concomitant]
     Route: 048
     Dates: start: 20050117, end: 20050120
  6. CEFZON [Concomitant]
     Route: 048
     Dates: start: 20050117, end: 20050120
  7. SP [Concomitant]
     Dosage: ROUTE: OROPHARINGEAL. FORM: LOZENGE
     Route: 050
     Dates: start: 20050117, end: 20050120
  8. KAKKON-TO [Concomitant]
     Dosage: DOSE FORM: ORAL FORMULATION (NOT OTHERWISE SPECIFIED)
     Route: 048

REACTIONS (3)
  - CONVULSION [None]
  - EPILEPSY [None]
  - LOSS OF CONSCIOUSNESS [None]
